FAERS Safety Report 16867558 (Version 1)
Quarter: 2019Q4

REPORT INFORMATION
  Report Type: Spontaneous
  Country: US (occurrence: US)
  Receive Date: 20190927
  Receipt Date: 20190927
  Transmission Date: 20200122
  Serious: Yes (Hospitalization)
  Sender: FDA-Public Use
  Company Number: None

PATIENT
  Age: 70 Year
  Sex: Female

DRUGS (20)
  1. LEVOTHYROXINE. [Concomitant]
     Active Substance: LEVOTHYROXINE
  2. TOLTERODINE [Concomitant]
     Active Substance: TOLTERODINE
  3. GLIMEPIRIDE. [Concomitant]
     Active Substance: GLIMEPIRIDE
  4. IORAZEPAM [Concomitant]
  5. OXYBUTININ [Concomitant]
     Active Substance: OXYBUTYNIN
  6. ZOLPIDEM [Concomitant]
     Active Substance: ZOLPIDEM TARTRATE
  7. TRAZODONE [Concomitant]
     Active Substance: TRAZODONE HYDROCHLORIDE
  8. ATORVASTATIN [Concomitant]
     Active Substance: ATORVASTATIN
  9. FERROUS SULFATE. [Concomitant]
     Active Substance: FERROUS SULFATE
  10. GABAPENTIN. [Concomitant]
     Active Substance: GABAPENTIN
  11. MELOXICAM. [Concomitant]
     Active Substance: MELOXICAM
  12. ASPIRIN. [Concomitant]
     Active Substance: ASPIRIN
  13. REBIF [Suspect]
     Active Substance: INTERFERON BETA-1A
     Indication: MULTIPLE SCLEROSIS
     Route: 058
  14. FUROSEMIDE. [Concomitant]
     Active Substance: FUROSEMIDE
  15. AMLODIPINE [Concomitant]
     Active Substance: AMLODIPINE BESYLATE
  16. METOPROLOL. [Concomitant]
     Active Substance: METOPROLOL
  17. BACLOFEN. [Concomitant]
     Active Substance: BACLOFEN
  18. HYDRALAZINE [Concomitant]
     Active Substance: HYDRALAZINE HYDROCHLORIDE
  19. OMEPRAZOLE. [Concomitant]
     Active Substance: OMEPRAZOLE
  20. VENLAFAXINE [Concomitant]
     Active Substance: VENLAFAXINE HYDROCHLORIDE

REACTIONS (1)
  - Confusional state [None]

NARRATIVE: CASE EVENT DATE: 20190923
